FAERS Safety Report 17915830 (Version 1)
Quarter: 2020Q2

REPORT INFORMATION
  Report Type: Spontaneous
  Country: DE (occurrence: DE)
  Receive Date: 20200619
  Receipt Date: 20200619
  Transmission Date: 20200714
  Serious: Yes (Other)
  Sender: FDA-Public Use
  Company Number: NVSC2020DE003643

PATIENT
  Age: 18 Month
  Sex: Male

DRUGS (3)
  1. ANTITHYMOCYTE IMMUNOGLOBULIN [Suspect]
     Active Substance: THYMOCYTE IMMUNE GLOBULIN NOS
     Indication: CHEMOTHERAPY
     Dosage: UNK (10 MG/KG BW, DIVIDED 1 X 1 MG/KG BW, 3 X 3 MG/KG BW)
     Route: 065
  2. FLUDARABINE PHOSPHATE. [Suspect]
     Active Substance: FLUDARABINE PHOSPHATE
     Indication: CHEMOTHERAPY
     Dosage: 160 MG/M2, QD (40 MG/M2, 4X/DAY)
     Route: 065
  3. MELPHALAN. [Suspect]
     Active Substance: MELPHALAN
     Indication: CHEMOTHERAPY
     Dosage: 120 MG/M2, QD (60 MG/M2, 2X/DAY)
     Route: 065

REACTIONS (8)
  - Haemolytic uraemic syndrome [Unknown]
  - Hypertension [Unknown]
  - Congestive cardiomyopathy [Unknown]
  - Skin depigmentation [Unknown]
  - Dwarfism [Unknown]
  - Acute kidney injury [Unknown]
  - Skin reaction [Unknown]
  - Oedema [Unknown]
